FAERS Safety Report 4855180-0 (Version None)
Quarter: 2005Q4

REPORT INFORMATION
  Report Type: 
  Country: None (occurrence: None)
  Receive Date: 20051125
  Receipt Date: 20050831
  Transmission Date: 20060501
  Serious: Yes (Hospitalization)
  Sender: FDA-Public Use
  Company Number: US-JNJFOC-20050803908

PATIENT
  Age: 79 Year
  Sex: Male

DRUGS (1)
  1. LEVAQUIN [Suspect]
     Indication: INFECTION PROPHYLAXIS
     Dosage: 500 MG, 1 IN 1 DAY
     Dates: start: 20050808, end: 20050808

REACTIONS (3)
  - MYOCARDIAL INFARCTION [None]
  - PATHOGEN RESISTANCE [None]
  - UROSEPSIS [None]
